FAERS Safety Report 22303294 (Version 1)
Quarter: 2023Q2

REPORT INFORMATION
  Report Type: Spontaneous
  Country: US (occurrence: None)
  Receive Date: 20230510
  Receipt Date: 20230510
  Transmission Date: 20230722
  Serious: Yes (Hospitalization, Disabling, Other)
  Sender: FDA-Public Use
  Company Number: 2023A104308

PATIENT
  Sex: Female

DRUGS (1)
  1. FARXIGA [Suspect]
     Active Substance: DAPAGLIFLOZIN PROPANEDIOL
     Dosage: 10.0MG UNKNOWN
     Route: 048

REACTIONS (22)
  - Oesophageal perforation [Unknown]
  - Intervertebral disc injury [Unknown]
  - Pneumothorax [Unknown]
  - Deafness unilateral [Unknown]
  - Cataract [Unknown]
  - Peritonitis [Unknown]
  - Confusional state [Unknown]
  - Hypoglycaemia [Unknown]
  - Pain [Unknown]
  - Psoriasis [Unknown]
  - Renal impairment [Unknown]
  - Urine abnormality [Unknown]
  - Migraine [Unknown]
  - Tremor [Unknown]
  - Asthma [Unknown]
  - Rheumatoid arthritis [Unknown]
  - Cyanosis [Unknown]
  - Immune system disorder [Unknown]
  - Viral infection [Unknown]
  - Oral bacterial infection [Unknown]
  - Staphylococcal infection [Unknown]
  - Loose tooth [Unknown]
